FAERS Safety Report 9902985 (Version 2)
Quarter: 2014Q1

REPORT INFORMATION
  Report Type: Spontaneous
  Country: DE (occurrence: DE)
  Receive Date: 20140217
  Receipt Date: 20140305
  Transmission Date: 20141002
  Serious: Yes (Other)
  Sender: FDA-Public Use
  Company Number: PHHY2014DE018614

PATIENT
  Sex: Male

DRUGS (4)
  1. VOLTAREN RESINAT 20 KAP [Suspect]
     Indication: MYALGIA
     Dosage: 2 DF, UNK
     Route: 048
     Dates: start: 20140209, end: 20140209
  2. VOLTAREN RESINAT 20 KAP [Suspect]
     Dosage: 1 DF, DAILY
     Route: 048
     Dates: start: 20140210, end: 20140212
  3. MORPHINE [Concomitant]
     Indication: PAIN
     Dosage: 10 MG, UNK
     Route: 048
     Dates: start: 20140209
  4. LEVODOPA [Concomitant]
     Indication: PARKINSON^S DISEASE
     Dosage: 20 MG, DAILY
     Route: 048
     Dates: start: 201401

REACTIONS (1)
  - Deafness [Recovered/Resolved]
